FAERS Safety Report 5548332-8 (Version None)
Quarter: 2007Q4

REPORT INFORMATION
  Report Type: 
  Country: None (occurrence: None)
  Receive Date: 20071206
  Receipt Date: 20071203
  Transmission Date: 20080405
  Serious: Yes (Death, Hospitalization, Other)
  Sender: FDA-Public Use
  Company Number: 2007SP014503

PATIENT
  Age: 63 Year
  Sex: Male
  Weight: 71 kg

DRUGS (14)
  1. TEMODAL [Suspect]
     Indication: MALIGNANT OLIGODENDROGLIOMA
     Dosage: PO; 200 MG/M2; QD; PO150 MG/M2; QD; PO
     Route: 048
     Dates: start: 20060722, end: 20060920
  2. TEMODAL [Suspect]
     Indication: MALIGNANT OLIGODENDROGLIOMA
     Dosage: PO; 200 MG/M2; QD; PO150 MG/M2; QD; PO
     Route: 048
     Dates: start: 20061014, end: 20061018
  3. TEMODAL [Suspect]
     Indication: MALIGNANT OLIGODENDROGLIOMA
     Dosage: PO; 200 MG/M2; QD; PO150 MG/M2; QD; PO
     Route: 048
     Dates: start: 20061111, end: 20061115
  4. TEMODAL [Suspect]
     Indication: MALIGNANT OLIGODENDROGLIOMA
     Dosage: PO; 200 MG/M2; QD; PO150 MG/M2; QD; PO
     Route: 048
     Dates: start: 20061216, end: 20061220
  5. TEMODAL [Suspect]
     Indication: MALIGNANT OLIGODENDROGLIOMA
     Dosage: PO; 200 MG/M2; QD; PO150 MG/M2; QD; PO
     Route: 048
     Dates: start: 20070221, end: 20070225
  6. TEMODAL [Suspect]
     Indication: MALIGNANT OLIGODENDROGLIOMA
     Dosage: PO; 200 MG/M2; QD; PO150 MG/M2; QD; PO
     Route: 048
     Dates: start: 20070418, end: 20070422
  7. TEMODAL [Suspect]
     Indication: MALIGNANT OLIGODENDROGLIOMA
     Dosage: PO; 200 MG/M2; QD; PO150 MG/M2; QD; PO
     Route: 048
     Dates: start: 20070627, end: 20070701
  8. TEMODAL [Suspect]
     Indication: MALIGNANT OLIGODENDROGLIOMA
     Dosage: PO; 200 MG/M2; QD; PO150 MG/M2; QD; PO
     Route: 048
     Dates: start: 20070830, end: 20070903
  9. DEPAKENE-R (VALPROATE SODIUM) [Suspect]
     Indication: DRUG USE FOR UNKNOWN INDICATION
     Dosage: PO
     Route: 048
  10. TEGRETOL [Suspect]
     Indication: DRUG USE FOR UNKNOWN INDICATION
     Dosage: PO
     Route: 048
     Dates: start: 20070128
  11. GABAPENTIN [Suspect]
     Indication: DRUG USE FOR UNKNOWN INDICATION
     Dosage: PO
     Route: 048
     Dates: start: 20070131
  12. PROCARBAZINE HYDROCHLORIDE (PROCARBAZINE HYDROCHLORIDE) [Suspect]
     Indication: DRUG USE FOR UNKNOWN INDICATION
     Dosage: PO
     Route: 048
     Dates: start: 20070216
  13. NAVOBAN [Concomitant]
  14. NAUZELIN [Concomitant]

REACTIONS (6)
  - CONVULSION [None]
  - DISEASE PROGRESSION [None]
  - MYELODYSPLASTIC SYNDROME [None]
  - NEUTROPHIL COUNT DECREASED [None]
  - PLATELET COUNT DECREASED [None]
  - WHITE BLOOD CELL COUNT DECREASED [None]
